FAERS Safety Report 11597317 (Version 1)
Quarter: 2015Q3

REPORT INFORMATION
  Report Type: Spontaneous
  Country: US (occurrence: US)
  Receive Date: 20150916
  Receipt Date: 20150916
  Transmission Date: 20151125
  Serious: No
  Sender: FDA-Public Use
  Company Number: US-ELI_LILLY_AND_COMPANY-US200801006231

PATIENT
  Sex: Female

DRUGS (9)
  1. FORTEO [Suspect]
     Active Substance: TERIPARATIDE
     Indication: OSTEOPOROSIS
     Dates: end: 2007
  2. VITAMIN D [Concomitant]
     Active Substance: CHOLECALCIFEROL
     Indication: SUPPLEMENTATION THERAPY
     Dosage: 50 IU, WEEKLY (1/W)
  3. LIDODERM [Concomitant]
     Active Substance: LIDOCAINE
     Indication: PAIN
  4. PREDNISONE. [Concomitant]
     Active Substance: PREDNISONE
     Indication: ASTHMA
  5. FORTEO [Suspect]
     Active Substance: TERIPARATIDE
     Dates: start: 20080124
  6. CALCIUM [Concomitant]
     Active Substance: CALCIUM
     Indication: SUPPLEMENTATION THERAPY
     Dosage: 800 MG, DAILY (1/D)
  7. BONIVA [Concomitant]
     Active Substance: IBANDRONATE SODIUM
  8. LYRICA [Concomitant]
     Active Substance: PREGABALIN
     Indication: FIBROMYALGIA
  9. FENTANYL. [Concomitant]
     Active Substance: FENTANYL
     Indication: PAIN

REACTIONS (1)
  - Myalgia [Not Recovered/Not Resolved]

NARRATIVE: CASE EVENT DATE: 2007
